FAERS Safety Report 17594467 (Version 1)
Quarter: 2020Q1

REPORT INFORMATION
  Report Type: Report from Study
  Country: US (occurrence: US)
  Receive Date: 20200327
  Receipt Date: 20200327
  Transmission Date: 20200409
  Serious: No
  Sender: FDA-Public Use
  Company Number: NVSC2020US018476

PATIENT
  Sex: Male

DRUGS (2)
  1. ENTRESTO [Suspect]
     Active Substance: SACUBITRIL\VALSARTAN
     Indication: CARDIAC FAILURE CONGESTIVE
     Dosage: 49 MG, BID (49 MG SACUBITRIL AND 51 MG VALSARTAN)- 100MG AM
     Route: 048
     Dates: start: 201909
  2. ENTRESTO [Suspect]
     Active Substance: SACUBITRIL\VALSARTAN
     Dosage: 1 DF (97MG SACUBITRIL /103MGVALSARTAN) PM
     Route: 048
     Dates: start: 202003

REACTIONS (1)
  - No adverse event [Unknown]
